FAERS Safety Report 24166510 (Version 1)
Quarter: 2024Q3

REPORT INFORMATION
  Report Type: Spontaneous
  Country: US (occurrence: US)
  Receive Date: 20240802
  Receipt Date: 20240802
  Transmission Date: 20241017
  Serious: No
  Sender: PFIZER
  Company Number: US-PFIZER INC-PV202400097014

PATIENT
  Age: 2 Year
  Sex: Female
  Weight: 7.2 kg

DRUGS (1)
  1. GENOTROPIN [Suspect]
     Active Substance: SOMATROPIN
     Indication: Small for dates baby
     Dosage: 0.2 MG, DAILY X7 DAYS WEEK
     Dates: start: 20240723

REACTIONS (1)
  - Crying [Unknown]
